FAERS Safety Report 4398929-6 (Version None)
Quarter: 2004Q3

REPORT INFORMATION
  Report Type: 
  Country: None (occurrence: None)
  Receive Date: 20040712
  Receipt Date: 20040621
  Transmission Date: 20050211
  Serious: Yes (Disabling)
  Sender: FDA-Public Use
  Company Number: WAES 0406ITA00032

PATIENT
  Age: 59 Year
  Sex: Male

DRUGS (5)
  1. CRIXIVAN [Suspect]
     Indication: KAPOSI'S SARCOMA CLASSICAL TYPE
     Dosage: 800 MG/BID, PO
     Route: 048
     Dates: start: 20030924, end: 20040316
  2. CRIXIVAN [Suspect]
     Indication: KAPOSI'S SARCOMA CLASSICAL TYPE
     Dosage: 800 MG/TID, PO
     Route: 048
     Dates: start: 20040317, end: 20040508
  3. BROMAZEPAM [Concomitant]
  4. DICLOFENAC SODIUM [Concomitant]
  5. GENTAMICIN SO4 [Concomitant]

REACTIONS (5)
  - CONDITION AGGRAVATED [None]
  - KAPOSI'S SARCOMA CLASSICAL TYPE [None]
  - LYMPHORRHOEA [None]
  - MALIGNANT NEOPLASM PROGRESSION [None]
  - PAIN IN EXTREMITY [None]
